FAERS Safety Report 18955983 (Version 1)
Quarter: 2021Q1

REPORT INFORMATION
  Report Type: Spontaneous
  Country: US (occurrence: US)
  Receive Date: 20210301
  Receipt Date: 20210301
  Transmission Date: 20210420
  Serious: No
  Sender: FDA-Public Use
  Company Number: US-009507513-2102USA008938

PATIENT
  Sex: Female

DRUGS (2)
  1. CX?024414. [Suspect]
     Active Substance: CX-024414
     Indication: PROPHYLAXIS
  2. KEYTRUDA [Suspect]
     Active Substance: PEMBROLIZUMAB
     Dosage: 3 WEEK DOSE INTERVAL
     Route: 042
     Dates: start: 202007

REACTIONS (1)
  - Pain in extremity [Unknown]
